FAERS Safety Report 4820916-1 (Version None)
Quarter: 2005Q4

REPORT INFORMATION
  Report Type: 
  Country: None (occurrence: None)
  Receive Date: 20051104
  Receipt Date: 20031217
  Transmission Date: 20060501
  Serious: Yes (Death, Other)
  Sender: FDA-Public Use
  Company Number: 200410632JP

PATIENT
  Age: 66 Year
  Sex: Male
  Weight: 57 kg

DRUGS (23)
  1. ARAVA [Suspect]
     Indication: RHEUMATOID ARTHRITIS
     Route: 048
     Dates: start: 20031023, end: 20031025
  2. ARAVA [Suspect]
     Route: 048
     Dates: start: 20031026, end: 20040217
  3. ARAVA [Suspect]
     Route: 048
     Dates: start: 20040218, end: 20040223
  4. RIMATIL [Concomitant]
     Route: 048
  5. BREDININ [Concomitant]
  6. VOLTAREN [Concomitant]
  7. LORCAM [Concomitant]
     Indication: INFLAMMATION
     Dates: end: 20040423
  8. MARZULENE S [Concomitant]
     Indication: GASTRITIS
     Route: 048
     Dates: end: 20040223
  9. SELTOUCH [Concomitant]
     Indication: INFLAMMATION
     Dates: end: 20040106
  10. ATELEC [Concomitant]
     Indication: HYPERTENSION
     Route: 048
     Dates: end: 20040223
  11. NU-LOTAN [Concomitant]
     Indication: HYPERTENSION
     Route: 048
     Dates: end: 20040223
  12. HARNAL [Concomitant]
     Indication: BENIGN PROSTATIC HYPERPLASIA
     Dosage: DOSE: 1 CAPSULE
     Route: 048
     Dates: end: 20040223
  13. ADALAT [Concomitant]
     Indication: CARDIAC FAILURE
     Route: 048
     Dates: end: 20040106
  14. ADALAT [Concomitant]
     Route: 048
     Dates: start: 20040107, end: 20040223
  15. ADALAT [Concomitant]
     Indication: HYPERTENSION
     Route: 048
     Dates: end: 20040106
  16. ADALAT [Concomitant]
     Route: 048
     Dates: start: 20040107, end: 20040223
  17. RIZABEN [Concomitant]
     Indication: HYPERSENSITIVITY
     Route: 048
     Dates: end: 20040223
  18. POLARAMINE [Concomitant]
     Indication: HYPERSENSITIVITY
     Route: 048
     Dates: end: 20040223
  19. LASIX [Concomitant]
     Indication: URINE OUTPUT
     Route: 048
     Dates: start: 20040219, end: 20040223
  20. MEILAX [Concomitant]
     Route: 048
  21. ADALAT [Concomitant]
     Indication: HYPERTENSION
     Route: 048
     Dates: end: 20040223
  22. CARDENALIN [Concomitant]
     Indication: HYPERTENSION
     Route: 048
     Dates: start: 20040219, end: 20040223
  23. NITRODERM [Concomitant]
     Indication: CARDIAC FAILURE
     Dosage: DOSE: 1 SHEET
     Route: 062
     Dates: start: 20040219, end: 20040223

REACTIONS (16)
  - ANGINA PECTORIS [None]
  - BLOOD ALKALINE PHOSPHATASE INCREASED [None]
  - BLOOD CHOLESTEROL INCREASED [None]
  - BLOOD CREATININE INCREASED [None]
  - BLOOD LACTATE DEHYDROGENASE INCREASED [None]
  - BLOOD PRESSURE INCREASED [None]
  - BLOOD UREA INCREASED [None]
  - CARDIAC ARREST [None]
  - CARDIAC FAILURE [None]
  - CORONARY ARTERY DISEASE [None]
  - DIARRHOEA [None]
  - HYPERTENSION [None]
  - HYPOALBUMINAEMIA [None]
  - INTERSTITIAL LUNG DISEASE [None]
  - PROTEINURIA [None]
  - RHINITIS ALLERGIC [None]
